FAERS Safety Report 5258372-4 (Version None)
Quarter: 2007Q1

REPORT INFORMATION
  Report Type: 
  Country: None (occurrence: None)
  Receive Date: 20061117
  Receipt Date: 20060411
  Transmission Date: 20070707
  Serious: Yes (Hospitalization)
  Sender: FDA-Public Use
  Company Number: US-JNJFOC-20060306394

PATIENT
  Age: 62 Year
  Sex: Male

DRUGS (1)
  1. LEVAQUIN [Suspect]
     Indication: PROPHYLAXIS
     Dosage: 500 MG
     Dates: start: 20060101

REACTIONS (5)
  - CONVULSION [None]
  - DRUG INEFFECTIVE [None]
  - ESCHERICHIA BACTERAEMIA [None]
  - PATHOGEN RESISTANCE [None]
  - PYREXIA [None]
